FAERS Safety Report 8110565-4 (Version None)
Quarter: 2012Q1

REPORT INFORMATION
  Report Type: 
  Country: None (occurrence: None)
  Receive Date: 20120203
  Receipt Date: 20120130
  Transmission Date: 20120608
  Serious: No
  Sender: FDA-Public Use
  Company Number: US-PFIZER INC-2012025170

PATIENT
  Sex: Male

DRUGS (3)
  1. GABAPENTIN [Suspect]
     Dosage: 300 MG
  2. LYRICA [Suspect]
     Indication: FIBROMYALGIA
     Dosage: 50 MG, 3X/DAY
  3. GABAPENTIN [Suspect]
     Indication: FIBROMYALGIA
     Dosage: 100 MG

REACTIONS (3)
  - WHEEZING [None]
  - RESPIRATORY DISORDER [None]
  - DRUG INEFFECTIVE [None]
